FAERS Safety Report 4297870-7 (Version None)
Quarter: 2004Q1

REPORT INFORMATION
  Report Type: 
  Country: None (occurrence: None)
  Receive Date: 20040217
  Receipt Date: 20040217
  Transmission Date: 20041129
  Serious: Yes (Other)
  Sender: FDA-Public Use
  Company Number: None

PATIENT
  Age: 64 Year
  Sex: Female

DRUGS (2)
  1. PROPOFOL [Suspect]
     Indication: SEDATIVE THERAPY
     Dosage: 20 MG IV X 3
     Route: 042
     Dates: start: 20040212
  2. MIDAZOLAM HCL [Concomitant]

REACTIONS (2)
  - AGITATION [None]
  - RESTLESSNESS [None]
